FAERS Safety Report 10310004 (Version 1)
Quarter: 2014Q3

REPORT INFORMATION
  Report Type: Spontaneous
  Country: US (occurrence: None)
  Receive Date: 20140715
  Receipt Date: 20140715
  Transmission Date: 20150326
  Serious: Yes (Other)
  Sender: FDA-Public Use
  Company Number: None

PATIENT
  Age: 41 Year
  Sex: Female
  Weight: 74.84 kg

DRUGS (1)
  1. BUPROPION [Suspect]
     Active Substance: BUPROPION
     Indication: DEPRESSION
     Dosage: 1 PILL  ONCE DAILY TAKEN BY MOUTH
     Route: 048
     Dates: start: 20140428, end: 20140618

REACTIONS (9)
  - Lethargy [None]
  - Hunger [None]
  - Agitation [None]
  - Product quality issue [None]
  - Sluggishness [None]
  - Product substitution issue [None]
  - Depression [None]
  - Drug ineffective [None]
  - Feeling jittery [None]

NARRATIVE: CASE EVENT DATE: 20140428
